FAERS Safety Report 4367335-2 (Version None)
Quarter: 2004Q2

REPORT INFORMATION
  Report Type: 
  Country: None (occurrence: None)
  Receive Date: 20040527
  Receipt Date: 20040513
  Transmission Date: 20050107
  Serious: Yes (Hospitalization)
  Sender: FDA-Public Use
  Company Number: FLUV00303003218

PATIENT
  Age: 29 Year
  Sex: Female
  Weight: 85 kg

DRUGS (4)
  1. LUVOX [Suspect]
     Indication: DEPRESSION
     Dosage: DAILY PO, 50 MG DAILY PO
     Route: 048
     Dates: start: 20030701, end: 20031022
  2. DOGMATYL (SULPIRIDE) [Concomitant]
  3. MEILAX [Concomitant]
  4. RISPERDAL [Concomitant]

REACTIONS (5)
  - DRUG ERUPTION [None]
  - EOSINOPHIL COUNT INCREASED [None]
  - JOINT SWELLING [None]
  - OEDEMA PERIPHERAL [None]
  - WHITE BLOOD CELL COUNT INCREASED [None]
